FAERS Safety Report 21784805 (Version 2)
Quarter: 2023Q1

REPORT INFORMATION
  Report Type: Spontaneous
  Country: IT (occurrence: None)
  Receive Date: 20221227
  Receipt Date: 20230207
  Transmission Date: 20230418
  Serious: Yes (Hospitalization)
  Sender: FDA-Public Use
  Company Number: 2022A411782

PATIENT
  Age: 74 Year
  Sex: Male

DRUGS (56)
  1. QUETIAPINE [Suspect]
     Active Substance: QUETIAPINE
     Indication: Obsessive rumination
     Dosage: DOSE UNKNOWN
     Route: 048
  2. QUETIAPINE [Suspect]
     Active Substance: QUETIAPINE
     Indication: Feelings of worthlessness
     Dosage: DOSE UNKNOWN
     Route: 048
  3. QUETIAPINE [Suspect]
     Active Substance: QUETIAPINE
     Indication: Apathy
     Dosage: DOSE UNKNOWN
     Route: 048
  4. QUETIAPINE [Suspect]
     Active Substance: QUETIAPINE
     Indication: Somatic dysfunction
     Dosage: DOSE UNKNOWN
     Route: 048
  5. QUETIAPINE [Suspect]
     Active Substance: QUETIAPINE
     Indication: Anxiety
     Dosage: DOSE UNKNOWN
     Route: 048
  6. QUETIAPINE [Suspect]
     Active Substance: QUETIAPINE
     Indication: Depressed mood
     Dosage: DOSE UNKNOWN
     Route: 048
  7. QUETIAPINE [Suspect]
     Active Substance: QUETIAPINE
     Indication: Obsessive rumination
     Dosage: 100.0MG UNKNOWN
     Route: 048
  8. QUETIAPINE [Suspect]
     Active Substance: QUETIAPINE
     Indication: Feelings of worthlessness
     Dosage: 100.0MG UNKNOWN
     Route: 048
  9. QUETIAPINE [Suspect]
     Active Substance: QUETIAPINE
     Indication: Apathy
     Dosage: 100.0MG UNKNOWN
     Route: 048
  10. QUETIAPINE [Suspect]
     Active Substance: QUETIAPINE
     Indication: Somatic dysfunction
     Dosage: 100.0MG UNKNOWN
     Route: 048
  11. QUETIAPINE [Suspect]
     Active Substance: QUETIAPINE
     Indication: Anxiety
     Dosage: 100.0MG UNKNOWN
     Route: 048
  12. QUETIAPINE [Suspect]
     Active Substance: QUETIAPINE
     Indication: Depressed mood
     Dosage: 100.0MG UNKNOWN
     Route: 048
  13. QUETIAPINE [Suspect]
     Active Substance: QUETIAPINE
     Indication: Obsessive rumination
     Dosage: 75.0MG UNKNOWN
     Route: 048
  14. QUETIAPINE [Suspect]
     Active Substance: QUETIAPINE
     Indication: Feelings of worthlessness
     Dosage: 75.0MG UNKNOWN
     Route: 048
  15. QUETIAPINE [Suspect]
     Active Substance: QUETIAPINE
     Indication: Apathy
     Dosage: 75.0MG UNKNOWN
     Route: 048
  16. QUETIAPINE [Suspect]
     Active Substance: QUETIAPINE
     Indication: Somatic dysfunction
     Dosage: 75.0MG UNKNOWN
     Route: 048
  17. QUETIAPINE [Suspect]
     Active Substance: QUETIAPINE
     Indication: Anxiety
     Dosage: 75.0MG UNKNOWN
     Route: 048
  18. QUETIAPINE [Suspect]
     Active Substance: QUETIAPINE
     Indication: Depressed mood
     Dosage: 75.0MG UNKNOWN
     Route: 048
  19. CITALOPRAM [Suspect]
     Active Substance: CITALOPRAM HYDROBROMIDE
     Indication: Apathy
     Dosage: DOSE UNKNOWN
     Route: 065
  20. CITALOPRAM [Suspect]
     Active Substance: CITALOPRAM HYDROBROMIDE
     Indication: Depressed mood
     Dosage: DOSE UNKNOWN
     Route: 065
  21. CITALOPRAM [Suspect]
     Active Substance: CITALOPRAM HYDROBROMIDE
     Indication: Feelings of worthlessness
     Dosage: DOSE UNKNOWN
     Route: 065
  22. CITALOPRAM [Suspect]
     Active Substance: CITALOPRAM HYDROBROMIDE
     Indication: Obsessive rumination
     Dosage: DOSE UNKNOWN
     Route: 065
  23. CITALOPRAM [Suspect]
     Active Substance: CITALOPRAM HYDROBROMIDE
     Indication: Anxiety
     Dosage: DOSE UNKNOWN
     Route: 065
  24. CITALOPRAM [Suspect]
     Active Substance: CITALOPRAM HYDROBROMIDE
     Indication: Somatic dysfunction
     Dosage: DOSE UNKNOWN
     Route: 065
  25. CITALOPRAM [Suspect]
     Active Substance: CITALOPRAM HYDROBROMIDE
     Indication: Apathy
     Dosage: 30.0MG UNKNOWN
     Route: 065
  26. CITALOPRAM [Suspect]
     Active Substance: CITALOPRAM HYDROBROMIDE
     Indication: Depressed mood
     Dosage: 30.0MG UNKNOWN
     Route: 065
  27. CITALOPRAM [Suspect]
     Active Substance: CITALOPRAM HYDROBROMIDE
     Indication: Feelings of worthlessness
     Dosage: 30.0MG UNKNOWN
     Route: 065
  28. CITALOPRAM [Suspect]
     Active Substance: CITALOPRAM HYDROBROMIDE
     Indication: Obsessive rumination
     Dosage: 30.0MG UNKNOWN
     Route: 065
  29. CITALOPRAM [Suspect]
     Active Substance: CITALOPRAM HYDROBROMIDE
     Indication: Anxiety
     Dosage: 30.0MG UNKNOWN
     Route: 065
  30. CITALOPRAM [Suspect]
     Active Substance: CITALOPRAM HYDROBROMIDE
     Indication: Somatic dysfunction
     Dosage: 30.0MG UNKNOWN
     Route: 065
  31. CITALOPRAM [Suspect]
     Active Substance: CITALOPRAM HYDROBROMIDE
     Indication: Apathy
     Dosage: 20.0MG UNKNOWN
     Route: 065
  32. CITALOPRAM [Suspect]
     Active Substance: CITALOPRAM HYDROBROMIDE
     Indication: Depressed mood
     Dosage: 20.0MG UNKNOWN
     Route: 065
  33. CITALOPRAM [Suspect]
     Active Substance: CITALOPRAM HYDROBROMIDE
     Indication: Feelings of worthlessness
     Dosage: 20.0MG UNKNOWN
     Route: 065
  34. CITALOPRAM [Suspect]
     Active Substance: CITALOPRAM HYDROBROMIDE
     Indication: Obsessive rumination
     Dosage: 20.0MG UNKNOWN
     Route: 065
  35. CITALOPRAM [Suspect]
     Active Substance: CITALOPRAM HYDROBROMIDE
     Indication: Anxiety
     Dosage: 20.0MG UNKNOWN
     Route: 065
  36. CITALOPRAM [Suspect]
     Active Substance: CITALOPRAM HYDROBROMIDE
     Indication: Somatic dysfunction
     Dosage: 20.0MG UNKNOWN
     Route: 065
  37. LORAZEPAM [Suspect]
     Active Substance: LORAZEPAM
     Indication: Anxiety
     Dosage: DOSE UNKNOWN
     Route: 065
  38. LORAZEPAM [Suspect]
     Active Substance: LORAZEPAM
     Indication: Depressed mood
     Dosage: DOSE UNKNOWN
     Route: 065
  39. LORAZEPAM [Suspect]
     Active Substance: LORAZEPAM
     Indication: Somatic dysfunction
     Dosage: DOSE UNKNOWN
     Route: 065
  40. LORAZEPAM [Suspect]
     Active Substance: LORAZEPAM
     Indication: Feelings of worthlessness
     Dosage: DOSE UNKNOWN
     Route: 065
  41. LORAZEPAM [Suspect]
     Active Substance: LORAZEPAM
     Indication: Apathy
     Dosage: DOSE UNKNOWN
     Route: 065
  42. LORAZEPAM [Suspect]
     Active Substance: LORAZEPAM
     Indication: Obsessive rumination
     Dosage: DOSE UNKNOWN
     Route: 065
  43. LORAZEPAM [Suspect]
     Active Substance: LORAZEPAM
     Indication: Anxiety
     Dosage: 2.5MG UNKNOWN
     Route: 065
  44. LORAZEPAM [Suspect]
     Active Substance: LORAZEPAM
     Indication: Depressed mood
     Dosage: 2.5MG UNKNOWN
     Route: 065
  45. LORAZEPAM [Suspect]
     Active Substance: LORAZEPAM
     Indication: Somatic dysfunction
     Dosage: 2.5MG UNKNOWN
     Route: 065
  46. LORAZEPAM [Suspect]
     Active Substance: LORAZEPAM
     Indication: Feelings of worthlessness
     Dosage: 2.5MG UNKNOWN
     Route: 065
  47. LORAZEPAM [Suspect]
     Active Substance: LORAZEPAM
     Indication: Apathy
     Dosage: 2.5MG UNKNOWN
     Route: 065
  48. LORAZEPAM [Suspect]
     Active Substance: LORAZEPAM
     Indication: Obsessive rumination
     Dosage: 2.5MG UNKNOWN
     Route: 065
  49. DULOXETINE [Concomitant]
     Active Substance: DULOXETINE
     Dosage: 60 MG
  50. TRAZODONE [Concomitant]
     Active Substance: TRAZODONE HYDROCHLORIDE
     Dosage: 25 MG
  51. DELORAZEPAM [Concomitant]
     Active Substance: DELORAZEPAM
     Dosage: 10 DROPS
  52. DELORAZEPAM [Concomitant]
     Active Substance: DELORAZEPAM
     Dosage: 25+10
  53. OMEPRAZOLE [Concomitant]
     Active Substance: OMEPRAZOLE
  54. METFORMIN [Concomitant]
     Active Substance: METFORMIN HYDROCHLORIDE
  55. ASPIRIN [Concomitant]
     Active Substance: ASPIRIN
  56. SIMVASTATIN [Concomitant]
     Active Substance: SIMVASTATIN

REACTIONS (1)
  - Drug ineffective [Unknown]
